FAERS Safety Report 10761896 (Version 10)
Quarter: 2015Q3

REPORT INFORMATION
  Report Type: Report from Study
  Country: RU (occurrence: RU)
  Receive Date: 20150204
  Receipt Date: 20150811
  Transmission Date: 20151125
  Serious: Yes (Death, Hospitalization)
  Sender: FDA-Public Use
  Company Number: RU-JNJFOC-20150119873

PATIENT
  Age: 46 Year
  Sex: Female
  Weight: 90 kg

DRUGS (3)
  1. DOXIL [Suspect]
     Active Substance: DOXORUBICIN HYDROCHLORIDE
     Route: 042
  2. DOXIL [Suspect]
     Active Substance: DOXORUBICIN HYDROCHLORIDE
     Indication: OVARIAN CANCER
     Dosage: CYCLE 1
     Route: 042
     Dates: start: 20150115
  3. TRABECTEDIN [Suspect]
     Active Substance: TRABECTEDIN
     Indication: OVARIAN CANCER
     Dosage: CYCLE 1
     Route: 042
     Dates: start: 20150115, end: 20150115

REACTIONS (1)
  - Peritonitis [Fatal]

NARRATIVE: CASE EVENT DATE: 20150128
